FAERS Safety Report 7230700-X (Version None)
Quarter: 2011Q1

REPORT INFORMATION
  Report Type: 
  Country: None (occurrence: None)
  Receive Date: 20110118
  Receipt Date: 20110113
  Transmission Date: 20110831
  Serious: Yes (Hospitalization)
  Sender: FDA-Public Use
  Company Number: US-ASTRAZENECA-2008UW21880

PATIENT
  Age: 43 Year
  Sex: Female
  Weight: 104.3 kg

DRUGS (14)
  1. INDOCIN [Concomitant]
     Indication: MIGRAINE
     Dates: start: 20050801
  2. ABILIFY [Concomitant]
  3. XANAX [Concomitant]
  4. LASIX [Concomitant]
     Dates: start: 20050801
  5. VERAPAMIL [Concomitant]
     Dates: start: 20050801
  6. NEURONTIN [Concomitant]
     Indication: PAIN MANAGEMENT
     Dates: start: 20050801
  7. ZYPREXA [Concomitant]
  8. ELAVIL [Concomitant]
     Indication: PAIN MANAGEMENT
     Dates: start: 20050801
  9. AMITRIPTYLINE [Concomitant]
  10. KEPPRA [Concomitant]
     Indication: MIGRAINE
     Dates: start: 20050801
  11. SEROQUEL [Suspect]
     Indication: BIPOLAR DISORDER
     Dosage: 25 MG TO 800 MG
     Route: 048
     Dates: start: 20030701
  12. THORAZINE [Concomitant]
  13. CLOZARIL [Concomitant]
  14. HALDOL [Concomitant]

REACTIONS (7)
  - BLOOD CHOLESTEROL INCREASED [None]
  - TYPE 2 DIABETES MELLITUS [None]
  - EMPHYSEMA [None]
  - BRONCHITIS [None]
  - THYROID DISORDER [None]
  - ANAEMIA [None]
  - OBESITY [None]
